FAERS Safety Report 24417188 (Version 1)
Quarter: 2024Q4

REPORT INFORMATION
  Report Type: Spontaneous
  Country: DE (occurrence: DE)
  Receive Date: 20241009
  Receipt Date: 20241009
  Transmission Date: 20250114
  Serious: Yes (Hospitalization, Other)
  Sender: FRESENIUS KABI
  Company Number: None

PATIENT
  Age: 65 Year
  Sex: Male
  Weight: 49 kg

DRUGS (2)
  1. OXALIPLATIN [Suspect]
     Active Substance: OXALIPLATIN
     Indication: Colon cancer metastatic
     Dosage: 59 MG - TREATMENT FROM 10:35 AM TO 12:35 PM?FORM OF ADMIN - CONCENTRATE FOR SOLUTION FOR INFUSION
     Route: 042
     Dates: start: 20240729
  2. CETUXIMAB [Concomitant]
     Active Substance: CETUXIMAB
     Indication: Product used for unknown indication

REACTIONS (6)
  - Chills [Unknown]
  - Muscle contracture [Unknown]
  - Spinal pain [Unknown]
  - Anaphylactic reaction [Unknown]
  - Oxygen saturation decreased [Unknown]
  - Dyspnoea [Unknown]

NARRATIVE: CASE EVENT DATE: 20240729
